FAERS Safety Report 10430623 (Version 1)
Quarter: 2014Q3

REPORT INFORMATION
  Report Type: Spontaneous
  Country: JP (occurrence: JP)
  Receive Date: 20140904
  Receipt Date: 20140904
  Transmission Date: 20150326
  Serious: Yes (Other)
  Sender: FDA-Public Use
  Company Number: JP-SA-2014SA120723

PATIENT
  Age: 21 Year
  Sex: Female

DRUGS (1)
  1. MYSLEE [Suspect]
     Active Substance: ZOLPIDEM TARTRATE
     Route: 048
     Dates: start: 2014

REACTIONS (2)
  - Intentional product misuse [Unknown]
  - Victim of sexual abuse [Unknown]

NARRATIVE: CASE EVENT DATE: 2014
